FAERS Safety Report 4456150-7 (Version None)
Quarter: 2004Q3

REPORT INFORMATION
  Report Type: 
  Country: None (occurrence: None)
  Receive Date: 20040920
  Receipt Date: 20040910
  Transmission Date: 20050211
  Serious: Yes (Other)
  Sender: FDA-Public Use
  Company Number: 2004-09-0562

PATIENT
  Sex: Female

DRUGS (2)
  1. TEMODAL [Suspect]
     Dosage: ORAL
     Route: 048
  2. TEMODAL [Suspect]

REACTIONS (1)
  - DEEP VEIN THROMBOSIS [None]
